FAERS Safety Report 19513494 (Version 3)
Quarter: 2021Q3

REPORT INFORMATION
  Report Type: Report from Study
  Country: FR (occurrence: FR)
  Receive Date: 20210710
  Receipt Date: 20210729
  Transmission Date: 20211014
  Serious: Yes (Death, Other)
  Sender: FDA-Public Use
  Company Number: FR-BRISTOL-MYERS SQUIBB COMPANY-BMS-2021-065819

PATIENT
  Sex: Male
  Weight: 110 kg

DRUGS (5)
  1. TRAMETINIB [Suspect]
     Active Substance: TRAMETINIB
     Dosage: 2 MILLIGRAM
     Route: 048
     Dates: start: 20210513, end: 20210621
  2. DABRAFENIB [Suspect]
     Active Substance: DABRAFENIB
     Indication: MALIGNANT MELANOMA
     Dosage: 150 MG, BID (300 MG)
     Route: 048
     Dates: start: 20210423, end: 20210511
  3. NIVOLUMAB [Suspect]
     Active Substance: NIVOLUMAB
     Indication: MALIGNANT MELANOMA
     Dosage: 240 MILLIGRAM
     Route: 042
     Dates: start: 20210625
  4. DABRAFENIB [Suspect]
     Active Substance: DABRAFENIB
     Dosage: 300 MILLIGRAM
     Route: 048
     Dates: start: 20210513, end: 20210621
  5. TRAMETINIB [Suspect]
     Active Substance: TRAMETINIB
     Indication: MALIGNANT MELANOMA
     Dosage: 2 MILLIGRAM, QD
     Route: 048
     Dates: start: 20210423, end: 20210511

REACTIONS (7)
  - Epilepsy [Unknown]
  - Neurological decompensation [Fatal]
  - Paraneoplastic syndrome [Fatal]
  - Neurotoxicity [Unknown]
  - Blood disorder [Unknown]
  - Encephalitis autoimmune [Fatal]
  - Meningitis [Unknown]

NARRATIVE: CASE EVENT DATE: 20210624
